FAERS Safety Report 5677311-5 (Version None)
Quarter: 2008Q1

REPORT INFORMATION
  Report Type: 
  Country: None (occurrence: None)
  Receive Date: 20080320
  Receipt Date: 20080320
  Transmission Date: 20080703
  Serious: No
  Sender: FDA-Public Use
  Company Number: None

PATIENT
  Sex: Female
  Weight: 58.9676 kg

DRUGS (1)
  1. ACIPHEX [Suspect]
     Indication: GASTROOESOPHAGEAL REFLUX DISEASE
     Dosage: 1 TABLET  2 @ DAY
     Dates: start: 20070116, end: 20070812

REACTIONS (15)
  - ARTHRALGIA [None]
  - BLINDNESS [None]
  - CHEST PAIN [None]
  - DIZZINESS [None]
  - ERUCTATION [None]
  - FATIGUE [None]
  - FLATULENCE [None]
  - MUSCLE SPASMS [None]
  - MUSCULAR WEAKNESS [None]
  - MUSCULOSKELETAL STIFFNESS [None]
  - MYALGIA [None]
  - PAIN IN EXTREMITY [None]
  - PARAESTHESIA [None]
  - SENSATION OF PRESSURE [None]
  - THROAT TIGHTNESS [None]
